FAERS Safety Report 5870821-7 (Version None)
Quarter: 2008Q3

REPORT INFORMATION
  Report Type: 
  Country: None (occurrence: None)
  Receive Date: 20080829
  Receipt Date: 20080819
  Transmission Date: 20090109
  Serious: Yes (Hospitalization, Other)
  Sender: FDA-Public Use
  Company Number: 2008SP016963

PATIENT
  Age: 50 Year
  Sex: Female
  Weight: 84.8226 kg

DRUGS (3)
  1. RIBAVIRIN [Suspect]
     Indication: HEPATITIS C
     Dosage: PO
     Route: 048
  2. PEGASYS [Suspect]
     Indication: HEPATITIS C
  3. ZOLPIDEM TARTRATE [Suspect]
     Indication: INSOMNIA

REACTIONS (19)
  - ABDOMINAL PAIN UPPER [None]
  - ALOPECIA [None]
  - ALPHA 1 FOETOPROTEIN INCREASED [None]
  - AMNESIA [None]
  - ANOREXIA [None]
  - ASTHENIA [None]
  - BONE PAIN [None]
  - FULL BLOOD COUNT DECREASED [None]
  - HEADACHE [None]
  - INCOHERENT [None]
  - INSOMNIA [None]
  - LOSS OF CONSCIOUSNESS [None]
  - NAUSEA [None]
  - OEDEMA PERIPHERAL [None]
  - OVERDOSE [None]
  - PRURIGO [None]
  - SOMNOLENCE [None]
  - SWELLING FACE [None]
  - WEIGHT DECREASED [None]
